FAERS Safety Report 10881898 (Version 1)
Quarter: 2015Q1

REPORT INFORMATION
  Report Type: Spontaneous
  Country: US (occurrence: None)
  Receive Date: 20150225
  Receipt Date: 20150225
  Transmission Date: 20150721
  Serious: Yes (Life-Threatening, Hospitalization, Other)
  Sender: FDA-Public Use
  Company Number: None

PATIENT
  Age: 69 Year
  Sex: Female
  Weight: 81.65 kg

DRUGS (7)
  1. PENTASA [Concomitant]
     Active Substance: MESALAMINE
  2. CARBAMAZAPINE [Suspect]
     Active Substance: CARBAMAZEPINE
     Indication: EPILEPSY
     Dosage: SEE NARRATIVE FOR DATE PATIENT STARTED TAKING MEDICATION.  STRENGTH: 300 MG ER, QUANTITY: 2 CAPSULES, FREQUENCY: 2 X DAILY, MOUTH
     Route: 048
     Dates: end: 20150103
  3. PAROXETINE [Concomitant]
     Active Substance: PAROXETINE\PAROXETINE HYDROCHLORIDE
  4. LAMOTRIGINE. [Concomitant]
     Active Substance: LAMOTRIGINE
  5. LEVOXYL [Concomitant]
     Active Substance: LEVOTHYROXINE SODIUM
  6. WELCHOL [Concomitant]
     Active Substance: COLESEVELAM HYDROCHLORIDE
  7. GARCINIA CAMBOGIA [Concomitant]
     Active Substance: HYDROXYCITRIC ACID

REACTIONS (8)
  - Malaise [None]
  - Toxicity to various agents [None]
  - Anticonvulsant drug level increased [None]
  - Product substitution issue [None]
  - Product formulation issue [None]
  - Dysarthria [None]
  - Balance disorder [None]
  - Dysstasia [None]

NARRATIVE: CASE EVENT DATE: 20150103
